FAERS Safety Report 7814079-8 (Version None)
Quarter: 2011Q4

REPORT INFORMATION
  Report Type: 
  Country: None (occurrence: None)
  Receive Date: 20111014
  Receipt Date: 20111004
  Transmission Date: 20120403
  Serious: Yes (Other)
  Sender: FDA-Public Use
  Company Number: US-JNJFOC-20111002134

PATIENT
  Sex: Female
  Weight: 70.31 kg

DRUGS (6)
  1. DEPAKOTE [Suspect]
     Indication: PRODUCT USED FOR UNKNOWN INDICATION
     Route: 065
  2. ZYPREXA [Suspect]
     Indication: SCHIZOPHRENIA
     Route: 048
  3. INVEGA SUSTENNA [Suspect]
     Indication: SCHIZOPHRENIA
     Route: 030
     Dates: start: 20110901
  4. INVEGA SUSTENNA [Suspect]
     Route: 030
     Dates: start: 20110701, end: 20110801
  5. INVEGA SUSTENNA [Suspect]
     Route: 030
     Dates: start: 20100101, end: 20110601
  6. UNKNOWN MEDICATION [Concomitant]
     Indication: BLADDER DISORDER
     Route: 048

REACTIONS (4)
  - THERAPEUTIC RESPONSE UNEXPECTED [None]
  - WEIGHT INCREASED [None]
  - ALOPECIA [None]
  - DYSKINESIA [None]
